FAERS Safety Report 8866227 (Version 1)
Quarter: 2012Q4

REPORT INFORMATION
  Report Type: 
  Country: GR (occurrence: GR)
  Receive Date: 20121025
  Receipt Date: 20121025
  Transmission Date: 20130627
  Serious: Yes (Other)
  Sender: FDA-Public Use
  Company Number: PHHY2012GR095460

PATIENT
  Age: 63 Year
  Sex: Female

DRUGS (1)
  1. DESFERAL [Suspect]
     Dosage: UNK UKN, UNK

REACTIONS (2)
  - Haemoglobin increased [Unknown]
  - Haematocrit increased [Unknown]
